FAERS Safety Report 7604737-2 (Version None)
Quarter: 2011Q3

REPORT INFORMATION
  Report Type: 
  Country: None (occurrence: None)
  Receive Date: 20110712
  Receipt Date: 20110628
  Transmission Date: 20111222
  Serious: No
  Sender: FDA-Public Use
  Company Number: US-B.I. PHARMACEUTICALS,INC./RIDGEFIELD-2011-BP-16604BP

PATIENT
  Age: 80 Year
  Sex: Male

DRUGS (7)
  1. VIT D [Concomitant]
     Indication: SUPPLEMENTATION THERAPY
  2. FENOFRIBRATE [Concomitant]
     Indication: BLOOD CHOLESTEROL INCREASED
  3. OMEPRAZOLE [Concomitant]
     Indication: GASTROOESOPHAGEAL REFLUX DISEASE
  4. PRADAXA [Suspect]
     Indication: ATRIAL FIBRILLATION
     Dosage: 300 MG
     Route: 048
     Dates: start: 20110611
  5. LISINOPRIL [Concomitant]
     Indication: HYPERTENSION
  6. PRAVASTATIN [Concomitant]
     Indication: BLOOD CHOLESTEROL INCREASED
  7. DIGOXIN [Concomitant]
     Indication: VASCULAR GRAFT

REACTIONS (2)
  - ABNORMAL FAECES [None]
  - DIARRHOEA [None]
